FAERS Safety Report 12257847 (Version 2)
Quarter: 2016Q2

REPORT INFORMATION
  Report Type: Report from Study
  Country: NL (occurrence: NL)
  Receive Date: 20160412
  Receipt Date: 20160530
  Transmission Date: 20160815
  Serious: Yes (Other)
  Sender: FDA-Public Use
  Company Number: NL-AMGEN-NLDSL2016044506

PATIENT
  Age: 81 Year
  Sex: Female

DRUGS (15)
  1. FENTANYL. [Concomitant]
     Active Substance: FENTANYL
     Dosage: 50 MUG, UNK
     Route: 065
     Dates: start: 20131204
  2. TAMOXIFEN [Concomitant]
     Active Substance: TAMOXIFEN
     Dosage: 20 MG, QD
     Route: 048
     Dates: start: 20130410
  3. XGEVA [Suspect]
     Active Substance: DENOSUMAB
     Indication: PRODUCT USED FOR UNKNOWN INDICATION
     Dosage: 120 MG, Q4WK
     Route: 058
     Dates: start: 20130410
  4. PANTOPRAZOL [Concomitant]
     Active Substance: PANTOPRAZOLE SODIUM
     Dosage: 40 MG, QD
     Route: 065
     Dates: start: 20141204
  5. METFORMINE [Concomitant]
     Active Substance: METFORMIN HYDROCHLORIDE
     Dosage: 500 MG, BID
     Route: 048
     Dates: start: 20141204
  6. SOTALOL. [Concomitant]
     Active Substance: SOTALOL
     Dosage: 80 MG, BID
     Route: 048
     Dates: start: 20130917
  7. MACROGOL [Concomitant]
     Active Substance: POLYETHYLENE GLYCOLS
     Dosage: UNK UNK, BID
     Route: 065
     Dates: start: 20090302
  8. INSULINE GLARGINE [Concomitant]
     Active Substance: INSULIN GLARGINE
     Dosage: (100 UNIT/ML) 3 ML, UNK
     Route: 065
     Dates: start: 20090302
  9. CALCIUM CARBONATE W/COLECALCIFEROL [Concomitant]
     Active Substance: CALCIUM CARBONATE\CHOLECALCIFEROL
     Dosage: 1.25 G/440 IU, BID
     Route: 065
     Dates: start: 20141204
  10. CLOPIDOGREL [Concomitant]
     Active Substance: CLOPIDOGREL BISULFATE
     Dosage: 75 MG, QD
     Route: 048
     Dates: start: 20141204
  11. DEXTRAN 70 W/HYPROMELLOSE [Concomitant]
     Dosage: 15 ML, BID
     Route: 065
     Dates: start: 20141204
  12. PERINDOPRIL TERT BUTYLAMINE/INDAPAMIDE SANDOZ [Concomitant]
     Dosage: 1.25 MG, QD
     Route: 048
     Dates: start: 20141204
  13. SIMVASTATINE [Concomitant]
     Active Substance: SIMVASTATIN
     Dosage: 40 MG, QD
     Route: 048
     Dates: start: 20141204
  14. DALTEPARINE SODIQUE [Concomitant]
     Dosage: 25000 IU/ML, QD
     Route: 065
     Dates: start: 20140801
  15. OXYCODON [Concomitant]
     Active Substance: OXYCODONE
     Dosage: 5 MG, QD
     Route: 048
     Dates: start: 20140206

REACTIONS (5)
  - Paraesthesia [Unknown]
  - Injection site haematoma [Unknown]
  - Fall [Unknown]
  - Bone pain [Unknown]
  - Pulmonary embolism [Unknown]

NARRATIVE: CASE EVENT DATE: 20130625
